FAERS Safety Report 18887069 (Version 1)
Quarter: 2021Q1

REPORT INFORMATION
  Report Type: Spontaneous
  Country: US (occurrence: US)
  Receive Date: 20210212
  Receipt Date: 20210212
  Transmission Date: 20210420
  Serious: No
  Sender: FDA-Public Use
  Company Number: US-SA-2021SA043021

PATIENT
  Sex: Male

DRUGS (1)
  1. DUPIXENT [Suspect]
     Active Substance: DUPILUMAB
     Indication: NASAL POLYPS
     Dosage: DRUG STRUCTURE DOSAGE : 200 MG

REACTIONS (4)
  - Nasal congestion [Unknown]
  - Product use issue [Unknown]
  - Product dose omission issue [Unknown]
  - Anosmia [Unknown]
